FAERS Safety Report 6012396-8 (Version None)
Quarter: 2008Q4

REPORT INFORMATION
  Report Type: 
  Country: None (occurrence: None)
  Receive Date: 20081218
  Receipt Date: 20081003
  Transmission Date: 20090506
  Serious: No
  Sender: FDA-Public Use
  Company Number: US-ASTRAZENECA-2008UW21647

PATIENT
  Age: 13 Year
  Sex: Female

DRUGS (1)
  1. SYMBICORT [Suspect]
     Dosage: 160 MCG, 2 INHALATIONS BID
     Route: 055

REACTIONS (2)
  - MUSCLE SPASMS [None]
  - MYALGIA [None]
